FAERS Safety Report 10433110 (Version 1)
Quarter: 2014Q3

REPORT INFORMATION
  Report Type: Spontaneous
  Country: US (occurrence: US)
  Receive Date: 20140905
  Receipt Date: 20140905
  Transmission Date: 20150326
  Serious: No
  Sender: FDA-Public Use
  Company Number: US-BAYER-2014-130156

PATIENT
  Age: 65 Year
  Sex: Female
  Weight: 72.56 kg

DRUGS (7)
  1. ASPIRIN LOW DOSE [Concomitant]
     Active Substance: ASPIRIN
     Indication: PLATELET COUNT INCREASED
     Dosage: 81 MG, BID
     Dates: start: 1983
  2. LEVOTHYROXINE [Concomitant]
     Active Substance: LEVOTHYROXINE
     Indication: HYPOTHYROIDISM
     Dosage: 0.088 MG, QD
     Dates: start: 1986
  3. BUMEX [Concomitant]
     Active Substance: BUMETANIDE
     Indication: LYMPHOEDEMA
     Dosage: 1 MG, PRN
  4. CALCIUM VIT D [Concomitant]
     Indication: SUPPLEMENTATION THERAPY
     Dosage: UNK UNK, QD
     Dates: start: 1996
  5. CLIMARA [Suspect]
     Active Substance: ESTRADIOL
     Indication: HYSTERECTOMY
     Dosage: UNK
     Dates: start: 1982
  6. ANTIPYRINE AND BENZOCAIN OTIC SO. [BENZOCAINE,PHENAZONE] [Concomitant]
     Dosage: 15 ML, PRN
  7. MULTIVITAMIN [Concomitant]
     Active Substance: VITAMINS
     Indication: SUPPLEMENTATION THERAPY
     Dosage: UNK, QD

REACTIONS (3)
  - Application site erythema [Not Recovered/Not Resolved]
  - Product adhesion issue [None]
  - Blood pressure increased [None]

NARRATIVE: CASE EVENT DATE: 20140820
